FAERS Safety Report 6547119-7 (Version None)
Quarter: 2010Q1

REPORT INFORMATION
  Report Type: 
  Country: None (occurrence: None)
  Receive Date: 20100122
  Receipt Date: 20100111
  Transmission Date: 20100710
  Serious: Yes (Hospitalization)
  Sender: FDA-Public Use
  Company Number: FR-ELI_LILLY_AND_COMPANY-FR200912004253

PATIENT
  Age: 11 Year
  Sex: Female
  Weight: 30 kg

DRUGS (1)
  1. HUMATROPE [Suspect]
     Indication: GROWTH HORMONE DEFICIENCY
     Dosage: 0.8 MG, DAILY (1/D) (12MG/3ML) SIX DAYS A WEEK
     Route: 058
     Dates: start: 20090901, end: 20091217

REACTIONS (1)
  - TYPE 1 DIABETES MELLITUS [None]
